FAERS Safety Report 7390904-2 (Version None)
Quarter: 2011Q2

REPORT INFORMATION
  Report Type: 
  Country: None (occurrence: None)
  Receive Date: 20110404
  Receipt Date: 20110325
  Transmission Date: 20111010
  Serious: No
  Sender: FDA-Public Use
  Company Number: US-BIOGENIDEC-2011BI011507

PATIENT
  Age: 47 Year
  Sex: Female

DRUGS (2)
  1. AVONEX [Suspect]
     Indication: MULTIPLE SCLEROSIS
     Route: 030
     Dates: start: 20091212
  2. AVONEX [Suspect]
     Route: 030
     Dates: start: 20080503, end: 20081201

REACTIONS (3)
  - PARAESTHESIA [None]
  - FOLLICULITIS [None]
  - HYPOAESTHESIA [None]
